FAERS Safety Report 5662221-X (Version None)
Quarter: 2008Q1

REPORT INFORMATION
  Report Type: 
  Country: None (occurrence: None)
  Receive Date: 20080312
  Receipt Date: 20080229
  Transmission Date: 20080703
  Serious: Yes (Hospitalization, Other)
  Sender: FDA-Public Use
  Company Number: US-PFIZER INC-2006000886

PATIENT
  Sex: Male
  Weight: 99.8 kg

DRUGS (3)
  1. VIAGRA [Suspect]
     Indication: ERECTILE DYSFUNCTION
     Route: 048
  2. NORVASC [Suspect]
     Indication: HYPERTENSION
     Route: 048
  3. TOPROL-XL [Suspect]
     Indication: HEART RATE INCREASED
     Route: 048

REACTIONS (11)
  - BLOOD PRESSURE INCREASED [None]
  - DYSPEPSIA [None]
  - EJACULATION DISORDER [None]
  - ERECTILE DYSFUNCTION [None]
  - HEART RATE INCREASED [None]
  - LACRIMATION INCREASED [None]
  - LOSS OF CONSCIOUSNESS [None]
  - NEOPLASM MALIGNANT [None]
  - PROSTATOMEGALY [None]
  - SINUS CONGESTION [None]
  - VISION BLURRED [None]
